FAERS Safety Report 20049644 (Version 1)
Quarter: 2021Q4

REPORT INFORMATION
  Report Type: Spontaneous
  Country: US (occurrence: US)
  Receive Date: 20211109
  Receipt Date: 20211109
  Transmission Date: 20220303
  Serious: No
  Sender: FDA-Public Use
  Company Number: US-BoehringerIngelheim-2021-BI-137234

PATIENT
  Age: 55 Year
  Sex: Female

DRUGS (1)
  1. JARDIANCE [Suspect]
     Active Substance: EMPAGLIFLOZIN
     Indication: Product used for unknown indication
     Dosage: 25MG DAILY
     Route: 048
     Dates: start: 2021, end: 202111

REACTIONS (3)
  - Illness [Recovering/Resolving]
  - Blood glucose decreased [Recovering/Resolving]
  - Loss of consciousness [Recovering/Resolving]
